FAERS Safety Report 5973029-X (Version None)
Quarter: 2008Q4

REPORT INFORMATION
  Report Type: 
  Country: None (occurrence: None)
  Receive Date: 20081201
  Receipt Date: 20081121
  Transmission Date: 20090506
  Serious: Yes (Hospitalization, Other)
  Sender: FDA-Public Use
  Company Number: GB-ASTRAZENECA-2008GB02022

PATIENT
  Age: 42 Year
  Weight: 56 kg

DRUGS (2)
  1. BUDESONIDE [Suspect]
     Indication: ASTHMA
     Dosage: 6MG
     Route: 048
     Dates: start: 20060501, end: 20060701
  2. BUDESONIDE [Suspect]
     Route: 048

REACTIONS (2)
  - TENDON PAIN [None]
  - TENDON RUPTURE [None]
